FAERS Safety Report 9104042 (Version 1)
Quarter: 2013Q1

REPORT INFORMATION
  Report Type: Spontaneous
  Country: FR (occurrence: FR)
  Receive Date: 20130219
  Receipt Date: 20130219
  Transmission Date: 20140127
  Serious: Yes (Hospitalization)
  Sender: FDA-Public Use
  Company Number: FR-SANOFI-AVENTIS-2013SA014659

PATIENT
  Age: 39 Year
  Sex: Female

DRUGS (2)
  1. RIFADINE [Suspect]
     Indication: HIDRADENITIS
     Route: 048
     Dates: start: 20121112, end: 20121126
  2. DALACIN [Suspect]
     Indication: HIDRADENITIS
     Route: 048
     Dates: start: 20121112, end: 20121126

REACTIONS (11)
  - Drug reaction with eosinophilia and systemic symptoms [Recovered/Resolved]
  - Hyperthermia [Recovered/Resolved]
  - Rash maculo-papular [Recovered/Resolved]
  - Face oedema [Recovered/Resolved]
  - Hypotension [Recovered/Resolved]
  - Rash papular [Recovered/Resolved]
  - Purpura [Recovered/Resolved]
  - Lymphadenopathy [Recovered/Resolved]
  - Diarrhoea [Recovered/Resolved]
  - Hepatocellular injury [Recovered/Resolved]
  - Lymphopenia [Recovered/Resolved]
